FAERS Safety Report 7240901-2 (Version None)
Quarter: 2011Q1

REPORT INFORMATION
  Report Type: 
  Country: None (occurrence: None)
  Receive Date: 20110120
  Receipt Date: 20110120
  Transmission Date: 20110831
  Serious: Yes (Hospitalization)
  Sender: FDA-Public Use
  Company Number: None

PATIENT
  Age: 23 Year
  Sex: Male
  Weight: 77 kg

DRUGS (1)
  1. OLANZAPINE [Suspect]
     Indication: SCHIZOAFFECTIVE DISORDER
     Dosage: 10 MG PO AM, 40 MG PO HS PRIOR TO ADMIT (12/03/10)
     Route: 048
     Dates: start: 20101203

REACTIONS (8)
  - LIVER FUNCTION TEST ABNORMAL [None]
  - WHITE BLOOD CELL COUNT INCREASED [None]
  - COGWHEEL RIGIDITY [None]
  - NEUROLEPTIC MALIGNANT SYNDROME [None]
  - DEHYDRATION [None]
  - MUSCULOSKELETAL STIFFNESS [None]
  - BLOOD CREATINE PHOSPHOKINASE INCREASED [None]
  - DYSKINESIA [None]
